FAERS Safety Report 10240742 (Version 1)
Quarter: 2014Q2

REPORT INFORMATION
  Report Type: Spontaneous
  Country: US (occurrence: US)
  Receive Date: 20140617
  Receipt Date: 20140617
  Transmission Date: 20141212
  Serious: No
  Sender: FDA-Public Use
  Company Number: US-009507513-1406USA002036

PATIENT
  Age: 18 Year
  Sex: Female
  Weight: 58.96 kg

DRUGS (2)
  1. NUVARING [Suspect]
     Indication: CONTRACEPTION
     Dosage: UNK
     Route: 067
     Dates: start: 20140502
  2. PLAN B ONE STEP [Suspect]
     Indication: CONTRACEPTION
     Dosage: 1.5 MILLIGRAM PER DAY, 1 IN 1 D
     Route: 048
     Dates: start: 20140504, end: 20140504

REACTIONS (1)
  - Vomiting [Not Recovered/Not Resolved]
